FAERS Safety Report 5919220-X (Version None)
Quarter: 2008Q4

REPORT INFORMATION
  Report Type: 
  Country: None (occurrence: None)
  Receive Date: 20081010
  Receipt Date: 20080924
  Transmission Date: 20090506
  Serious: Yes (Hospitalization)
  Sender: FDA-Public Use
  Company Number: 8037613

PATIENT
  Age: 19 Year
  Sex: Female
  Weight: 40.5 kg

DRUGS (5)
  1. KEPPRA [Suspect]
     Indication: EPILEPSY
     Dosage: 250 MG /D PO
     Route: 048
     Dates: start: 20070301, end: 20070601
  2. KEPPRA [Suspect]
     Indication: EPILEPSY
     Dosage: 250 MG /D PO
     Route: 048
     Dates: start: 20070601, end: 20071101
  3. KEPPRA [Suspect]
     Indication: EPILEPSY
     Dosage: 500 MG 2/D PO
     Route: 048
     Dates: start: 20071101, end: 20080601
  4. TEGRETOL [Concomitant]
  5. LAMICTAL [Concomitant]

REACTIONS (5)
  - ANOREXIA NERVOSA [None]
  - BULIMIA NERVOSA [None]
  - GAMMA-GLUTAMYLTRANSFERASE INCREASED [None]
  - TRANSAMINASES INCREASED [None]
  - WEIGHT DECREASED [None]
